FAERS Safety Report 4930207-6 (Version None)
Quarter: 2006Q1

REPORT INFORMATION
  Report Type: 
  Country: None (occurrence: None)
  Receive Date: 20060302
  Receipt Date: 20060209
  Transmission Date: 20060701
  Serious: Yes (Hospitalization)
  Sender: FDA-Public Use
  Company Number: FR-ROCHE-435967

PATIENT
  Age: 89 Year
  Sex: Male

DRUGS (3)
  1. ROCEPHIN [Suspect]
     Dosage: FORM REPORTED AS INJECTABLE SOLUTION.
     Route: 042
     Dates: start: 20051221, end: 20060104
  2. ROVAMYCINE [Suspect]
     Indication: DRUG USE FOR UNKNOWN INDICATION
     Route: 042
     Dates: start: 20051220, end: 20060103
  3. DEROXAT [Concomitant]
     Dosage: REPORTED AS DEROXAT (EX SEROXAT).
     Route: 048
     Dates: start: 20051222, end: 20060105

REACTIONS (5)
  - DRUG ERUPTION [None]
  - ERYTHEMA [None]
  - HYPERSENSITIVITY [None]
  - PRURITUS [None]
  - PURPURA [None]
